FAERS Safety Report 13932463 (Version 1)
Quarter: 2017Q3

REPORT INFORMATION
  Report Type: Spontaneous
  Country: GB (occurrence: GB)
  Receive Date: 20170904
  Receipt Date: 20170904
  Transmission Date: 20171127
  Serious: Yes (Death, Other)
  Sender: FDA-Public Use
  Company Number: GB-ACCORD-057862

PATIENT
  Age: 72 Year
  Sex: Female

DRUGS (11)
  1. CARBOPLATIN. [Suspect]
     Active Substance: CARBOPLATIN
     Indication: BREAST CANCER
  2. DOSULEPIN HYDROCHLORIDE [Concomitant]
     Active Substance: DOTHIEPIN HYDROCHLORIDE
  3. TRAMADOL. [Concomitant]
     Active Substance: TRAMADOL
  4. LANSOPRAZOLE. [Concomitant]
     Active Substance: LANSOPRAZOLE
  5. DEXAMETHASONE. [Concomitant]
     Active Substance: DEXAMETHASONE
  6. ETOPOSIDE. [Suspect]
     Active Substance: ETOPOSIDE
     Indication: BREAST CANCER
  7. BISOPROLOL [Concomitant]
     Active Substance: BISOPROLOL
  8. ZOPICLONE [Concomitant]
     Active Substance: ZOPICLONE
  9. CO-DYDRAMOL [Concomitant]
     Active Substance: ACETAMINOPHEN\DIHYDROCODEINE
  10. TERBUTALINE [Concomitant]
     Active Substance: TERBUTALINE
  11. RANITIDINE. [Concomitant]
     Active Substance: RANITIDINE

REACTIONS (6)
  - Hypokalaemia [Unknown]
  - Neutropenic sepsis [Fatal]
  - Hyponatraemia [Unknown]
  - Pancytopenia [Unknown]
  - Abdominal sepsis [Unknown]
  - Off label use [Unknown]

NARRATIVE: CASE EVENT DATE: 20170514
